FAERS Safety Report 11492047 (Version 1)
Quarter: 2015Q3

REPORT INFORMATION
  Report Type: Spontaneous
  Country: US (occurrence: None)
  Receive Date: 20150909
  Receipt Date: 20150909
  Transmission Date: 20151125
  Serious: No
  Sender: FDA-Public Use
  Company Number: None

PATIENT
  Age: 49 Year
  Sex: Male
  Weight: 84.82 kg

DRUGS (1)
  1. ENBREL [Suspect]
     Active Substance: ETANERCEPT
     Indication: ANKYLOSING SPONDYLITIS
     Dosage: 1 SURECLICK PEN
     Route: 058
     Dates: start: 20150219

REACTIONS (2)
  - Musculoskeletal disorder [None]
  - Rash [None]

NARRATIVE: CASE EVENT DATE: 20150824
